FAERS Safety Report 10229412 (Version 1)
Quarter: 2014Q2

REPORT INFORMATION
  Report Type: Spontaneous
  Country: US (occurrence: US)
  Receive Date: 20140611
  Receipt Date: 20140611
  Transmission Date: 20141212
  Serious: Yes (Hospitalization, Other)
  Sender: FDA-Public Use
  Company Number: US-AMGEN INC.-USASP2014042964

PATIENT
  Age: 49 Year
  Sex: Male

DRUGS (1)
  1. ENBREL [Suspect]
     Indication: RHEUMATOID ARTHRITIS
     Dosage: UNK UNK, QWK
     Route: 065
     Dates: start: 201402

REACTIONS (9)
  - Hepatitis alcoholic [Recovered/Resolved]
  - Abnormal behaviour [Not Recovered/Not Resolved]
  - Personality change [Not Recovered/Not Resolved]
  - Stubbornness [Not Recovered/Not Resolved]
  - Dysphonia [Not Recovered/Not Resolved]
  - Frustration [Not Recovered/Not Resolved]
  - Confusional state [Recovered/Resolved]
  - Memory impairment [Recovered/Resolved]
  - Anger [Not Recovered/Not Resolved]
